FAERS Safety Report 8525623-X (Version None)
Quarter: 2012Q3

REPORT INFORMATION
  Report Type: 
  Country: None (occurrence: None)
  Receive Date: 20120720
  Receipt Date: 20120709
  Transmission Date: 20120928
  Serious: Yes (Other)
  Sender: FDA-Public Use
  Company Number: JP-PFIZER INC-2012173817

PATIENT
  Age: 76 Year
  Sex: Male

DRUGS (5)
  1. CELEBREX [Suspect]
     Indication: PAIN
     Dosage: 200 MG, 2X/DAY
     Route: 048
     Dates: start: 20120101, end: 20120706
  2. LOSARTAN POTASSIUM [Concomitant]
     Dosage: UNK
  3. CELEBREX [Suspect]
     Dosage: 200 MG, 1X/DAY
     Route: 048
     Dates: start: 20120707
  4. LANSOPRAZOLE [Concomitant]
     Dosage: UNK
  5. ALPRAZOLAM [Concomitant]
     Dosage: UNK

REACTIONS (2)
  - OFF LABEL USE [None]
  - ARRHYTHMIA [None]
